FAERS Safety Report 19584238 (Version 4)
Quarter: 2022Q1

REPORT INFORMATION
  Report Type: Spontaneous
  Country: US (occurrence: US)
  Receive Date: 20210720
  Receipt Date: 20220330
  Transmission Date: 20220423
  Serious: No
  Sender: FDA-Public Use
  Company Number: US-PFIZER INC-2021361726

PATIENT
  Age: 70 Year
  Sex: Female

DRUGS (7)
  1. BOSULIF [Suspect]
     Active Substance: BOSUTINIB MONOHYDRATE
     Dosage: 400 MG
     Dates: start: 20210224, end: 2021
  2. BOSULIF [Suspect]
     Active Substance: BOSUTINIB MONOHYDRATE
     Dosage: 400 MG
     Dates: start: 20210315, end: 202103
  3. BOSULIF [Suspect]
     Active Substance: BOSUTINIB MONOHYDRATE
     Dosage: 400 MG
     Dates: start: 20210318, end: 202103
  4. BOSULIF [Suspect]
     Active Substance: BOSUTINIB MONOHYDRATE
     Dosage: 400 MG
     Dates: start: 20210324, end: 20210326
  5. BOSULIF [Suspect]
     Active Substance: BOSUTINIB MONOHYDRATE
     Dosage: 100 MG
     Dates: start: 20210324, end: 20220120
  6. BOSULIF [Suspect]
     Active Substance: BOSUTINIB MONOHYDRATE
     Dosage: UNK
     Dates: start: 20210818
  7. BOSULIF [Suspect]
     Active Substance: BOSUTINIB MONOHYDRATE
     Dosage: 100 MG
     Dates: start: 20211125, end: 20220120

REACTIONS (16)
  - Nausea [Unknown]
  - Vomiting [Unknown]
  - Decreased appetite [Unknown]
  - Weight decreased [Unknown]
  - Constipation [Unknown]
  - Rash pruritic [Unknown]
  - Miliaria [Unknown]
  - Gastrooesophageal reflux disease [Recovered/Resolved]
  - Swelling face [Unknown]
  - Periorbital swelling [Unknown]
  - Pleural effusion [Recovered/Resolved]
  - Joint swelling [Unknown]
  - Cough [Unknown]
  - Hypoaesthesia [Unknown]
  - Pruritus [Unknown]
  - Hypersensitivity [Unknown]

NARRATIVE: CASE EVENT DATE: 20210101
